FAERS Safety Report 8766433 (Version 2)
Quarter: 2012Q4

REPORT INFORMATION
  Report Type: Report from Study
  Country: PT (occurrence: PT)
  Receive Date: 20120914
  Receipt Date: 20121129
  Transmission Date: 20130627
  Serious: Yes (Other)
  Sender: FDA-Public Use
  Company Number: PT-ROCHE-1102622

PATIENT
  Age: 45 Year
  Sex: Female

DRUGS (5)
  1. RITUXIMAB [Suspect]
     Indication: IDIOPATHIC THROMBOCYTOPENIC PURPURA
     Route: 065
     Dates: start: 201003
  2. RITUXIMAB [Suspect]
     Dosage: 4 weekly cycles
     Route: 065
     Dates: start: 20101014
  3. RITUXIMAB [Suspect]
     Route: 065
     Dates: start: 20101021
  4. RITUXIMAB [Suspect]
     Route: 065
     Dates: start: 20101028
  5. RITUXIMAB [Suspect]
     Route: 065
     Dates: start: 20101104

REACTIONS (3)
  - Ecchymosis [Recovered/Resolved]
  - Gingival bleeding [Recovered/Resolved]
  - Thrombocytopenia [Unknown]
